FAERS Safety Report 9510552 (Version 3)
Quarter: 2013Q4

REPORT INFORMATION
  Report Type: Spontaneous
  Country: DE (occurrence: DE)
  Receive Date: 20130909
  Receipt Date: 20131016
  Transmission Date: 20140711
  Serious: Yes (Life-Threatening)
  Sender: FDA-Public Use
  Company Number: PHHY2013DE049812

PATIENT
  Sex: Female
  Weight: 60 kg

DRUGS (4)
  1. RASILEZ [Suspect]
     Indication: HYPERTENSION
     Dosage: 0.5 DF (150 MG), BID (0.5 IN MORNING AND 0.5 IN NIGHT)
  2. AMLODIPINE [Concomitant]
     Dosage: 5 MG/DL, UNK
  3. CONCOR [Concomitant]
     Dosage: 5 MG/DL, UNK
  4. VOMEX A [Concomitant]
     Dosage: UNK UKN, UNK
     Route: 042
     Dates: start: 20130514

REACTIONS (3)
  - Hyponatraemia [Recovered/Resolved]
  - Blood creatinine decreased [Unknown]
  - Wrong technique in drug usage process [Unknown]
